FAERS Safety Report 6258756-1 (Version None)
Quarter: 2009Q3

REPORT INFORMATION
  Report Type: 
  Country: None (occurrence: None)
  Receive Date: 20090707
  Receipt Date: 20090629
  Transmission Date: 20100115
  Serious: Yes (Other)
  Sender: FDA-Public Use
  Company Number: B0582535A

PATIENT
  Age: 58 Year
  Sex: Female

DRUGS (2)
  1. KIVEXA [Suspect]
     Indication: DRUG USE FOR UNKNOWN INDICATION
     Route: 065
     Dates: start: 20080116
  2. KALETRA [Concomitant]
     Dates: start: 20080116

REACTIONS (2)
  - GENERAL PHYSICAL HEALTH DETERIORATION [None]
  - MYELOFIBROSIS [None]
